FAERS Safety Report 10522189 (Version 1)
Quarter: 2014Q4

REPORT INFORMATION
  Report Type: Report from Study
  Country: US (occurrence: US)
  Receive Date: 20141016
  Receipt Date: 20141016
  Transmission Date: 20150528
  Serious: Yes (Hospitalization, Other)
  Sender: FDA-Public Use
  Company Number: US-US-EMD SERONO, INC.-7327194

PATIENT
  Age: 31 Year
  Sex: Female

DRUGS (1)
  1. REBIF [Suspect]
     Active Substance: INTERFERON BETA-1A
     Indication: MULTIPLE SCLEROSIS
     Dates: start: 20021204, end: 201408

REACTIONS (13)
  - Increased tendency to bruise [Unknown]
  - Lymphadenopathy [Not Recovered/Not Resolved]
  - White blood cell count decreased [Unknown]
  - Epistaxis [Unknown]
  - Platelet count decreased [Recovered/Resolved]
  - Red blood cell count decreased [Unknown]
  - Lack of injection site rotation [Unknown]
  - Injection site mass [Not Recovered/Not Resolved]
  - Decreased appetite [Recovered/Resolved]
  - Cellulitis [Unknown]
  - Menstruation irregular [Recovered/Resolved]
  - Lymphadenopathy [Recovered/Resolved]
  - Petechiae [Unknown]

NARRATIVE: CASE EVENT DATE: 201404
